FAERS Safety Report 10018330 (Version 2)
Quarter: 2014Q4

REPORT INFORMATION
  Report Type: Spontaneous
  Country: US (occurrence: US)
  Receive Date: 20140318
  Receipt Date: 20141205
  Transmission Date: 20150528
  Serious: Yes (Death)
  Sender: FDA-Public Use
  Company Number: US-BRISTOL-MYERS SQUIBB COMPANY-20106274

PATIENT
  Age: 51 Year
  Sex: Male

DRUGS (2)
  1. BENADRYL [Concomitant]
     Active Substance: DIPHENHYDRAMINE HYDROCHLORIDE
  2. ERBITUX [Suspect]
     Active Substance: CETUXIMAB
     Indication: HEAD AND NECK CANCER STAGE IV
     Dosage: EXP DT:31JUL15,RECEIVED DOSES:01,08,15,22,29APR;13,20,28MAY;03,10,17,24JUN13;01,08,15, 22JUL,29JUL13
     Route: 042
     Dates: start: 20130225, end: 20130729

REACTIONS (1)
  - Malignant neoplasm progression [Fatal]
